FAERS Safety Report 7062927-4 (Version None)
Quarter: 2010Q4

REPORT INFORMATION
  Report Type: 
  Country: None (occurrence: None)
  Receive Date: 20101026
  Receipt Date: 20101018
  Transmission Date: 20110411
  Serious: Yes (Hospitalization)
  Sender: FDA-Public Use
  Company Number: BE-ABBOTT-10P-013-0678715-00

PATIENT
  Sex: Female

DRUGS (2)
  1. HUMIRA [Suspect]
     Indication: RHEUMATOID ARTHRITIS
     Dates: start: 20041129, end: 20100412
  2. HUMIRA [Suspect]
     Dates: start: 20100515

REACTIONS (7)
  - ARTHRITIS [None]
  - ASTHENIA [None]
  - DECREASED APPETITE [None]
  - LETHARGY [None]
  - OEDEMA PERIPHERAL [None]
  - PYELONEPHRITIS [None]
  - PYREXIA [None]
